FAERS Safety Report 17651592 (Version 2)
Quarter: 2021Q3

REPORT INFORMATION
  Report Type: Report from Study
  Country: US (occurrence: US)
  Receive Date: 20200409
  Receipt Date: 20210806
  Transmission Date: 20211014
  Serious: Yes (Other)
  Sender: FDA-Public Use
  Company Number: US-SHIRE-US202012861

PATIENT
  Age: 50 Year
  Sex: Female

DRUGS (4)
  1. TEDUGLUTIDE [Suspect]
     Active Substance: TEDUGLUTIDE
     Indication: SHORT-BOWEL SYNDROME
     Dosage: 0.2300 UNIT UNKNOWN, FREQUENCY UNKNOWN
     Route: 058
     Dates: start: 20190116
  2. TEDUGLUTIDE [Suspect]
     Active Substance: TEDUGLUTIDE
     Indication: SHORT-BOWEL SYNDROME
     Dosage: 0.2300 UNIT UNKNOWN, FREQUENCY UNKNOWN
     Route: 058
     Dates: start: 20190116
  3. TEDUGLUTIDE [Suspect]
     Active Substance: TEDUGLUTIDE
     Indication: SHORT-BOWEL SYNDROME
     Dosage: 0.2300 UNIT UNKNOWN, FREQUENCY UNKNOWN
     Route: 058
     Dates: start: 20190116
  4. TEDUGLUTIDE [Suspect]
     Active Substance: TEDUGLUTIDE
     Indication: SHORT-BOWEL SYNDROME
     Dosage: 0.2300 UNIT UNKNOWN, FREQUENCY UNKNOWN
     Route: 058
     Dates: start: 20190116

REACTIONS (3)
  - Stoma site haemorrhage [Recovering/Resolving]
  - Vascular device infection [Unknown]
  - Stoma complication [Recovering/Resolving]

NARRATIVE: CASE EVENT DATE: 20200408
